FAERS Safety Report 17849210 (Version 1)
Quarter: 2020Q2

REPORT INFORMATION
  Report Type: Spontaneous
  Country: CN (occurrence: CN)
  Receive Date: 20200602
  Receipt Date: 20200602
  Transmission Date: 20200714
  Serious: Yes (Other)
  Sender: FDA-Public Use
  Company Number: CN-UCBSA-2020021221

PATIENT
  Age: 0 Year
  Sex: Male
  Weight: 3.2 kg

DRUGS (2)
  1. CIMZIA [Suspect]
     Active Substance: CERTOLIZUMAB PEGOL
     Indication: COMPLICATION OF PREGNANCY
  2. CIMZIA [Suspect]
     Active Substance: CERTOLIZUMAB PEGOL
     Indication: ANTIPHOSPHOLIPID SYNDROME
     Dosage: 200 MILLIGRAM, UNK
     Route: 064
     Dates: start: 20191122

REACTIONS (2)
  - Pneumonia [Unknown]
  - Maternal exposure during pregnancy [Unknown]

NARRATIVE: CASE EVENT DATE: 20191122
